FAERS Safety Report 7672315-5 (Version None)
Quarter: 2011Q3

REPORT INFORMATION
  Report Type: 
  Country: None (occurrence: None)
  Receive Date: 20110809
  Receipt Date: 20110801
  Transmission Date: 20111222
  Serious: Yes (Other)
  Sender: FDA-Public Use
  Company Number: JP-PFIZER INC-2011054517

PATIENT
  Age: 73 Year
  Sex: Male
  Weight: 60 kg

DRUGS (17)
  1. ASPIRIN [Concomitant]
     Indication: MYOCARDIAL INFARCTION
     Dosage: 100 MG, DAILY
     Route: 048
     Dates: start: 20101210
  2. TANATRIL [Concomitant]
     Indication: MYOCARDIAL INFARCTION
     Dosage: 5 MG, DAILY
     Route: 048
     Dates: start: 20101210
  3. PLAVIX [Concomitant]
     Indication: MYOCARDIAL INFARCTION
     Dosage: 75 MG, 1X/DAY
     Route: 048
     Dates: start: 20110108
  4. LYRICA [Suspect]
     Dosage: 25 MG/DAY
     Route: 048
     Dates: start: 20110305
  5. FRANDOL [Concomitant]
     Indication: MYOCARDIAL INFARCTION
     Dosage: 40 MG/DAY QD
     Dates: start: 20101201
  6. FERROUS CITRATE [Concomitant]
     Indication: ANAEMIA
     Dosage: 100 MG, DAILY
     Route: 048
     Dates: start: 20110223
  7. ZOSYN [Suspect]
     Indication: PNEUMONIA
     Dosage: 2.25 G, 3X/DAY
     Route: 041
     Dates: start: 20110301, end: 20110307
  8. LYRICA [Suspect]
     Indication: PHANTOM PAIN
     Dosage: 50 MG, 1X/DAY
     Route: 048
     Dates: start: 20110131
  9. LASIX [Concomitant]
     Indication: MYOCARDIAL INFARCTION
     Dosage: 20 MG, 1X/DAY
     Route: 048
     Dates: start: 20101216
  10. KALIMATE [Concomitant]
     Dosage: 1 DOSAGE FORM/DAY
     Route: 048
  11. HUMALOG [Concomitant]
     Indication: DIABETES MELLITUS
     Dosage: 21 LU/DAY
     Route: 058
  12. ALLOPURINOL [Concomitant]
     Indication: HYPERURICAEMIA
     Dosage: 200 MG, 1X/DAY
     Route: 048
     Dates: start: 20101225
  13. LANTUS [Concomitant]
     Dosage: 5 IU, 1X/DAY
     Route: 058
  14. ROCEPHIN [Suspect]
     Indication: PYREXIA
     Dosage: 2 G/DAY
     Route: 041
     Dates: start: 20110219, end: 20110228
  15. RABEPRAZOLE SODIUM [Concomitant]
     Dosage: 10 MG, 1X/DAY
     Route: 048
     Dates: start: 20101210
  16. AMOBAN [Concomitant]
     Indication: INSOMNIA
     Dosage: 7.5 MG, DAILY
     Route: 048
     Dates: start: 20101214
  17. LASIX [Concomitant]
     Dosage: 20 MG/DAY
     Route: 042

REACTIONS (2)
  - WHITE BLOOD CELL COUNT DECREASED [None]
  - NEUTROPHIL COUNT DECREASED [None]
